FAERS Safety Report 8959020 (Version 6)
Quarter: 2013Q3

REPORT INFORMATION
  Report Type: Spontaneous
  Country: US (occurrence: US)
  Receive Date: 20121212
  Receipt Date: 20130703
  Transmission Date: 20140515
  Serious: Yes (Other)
  Sender: FDA-Public Use
  Company Number: US-009507513-1212USA003762

PATIENT
  Age: 20 Year
  Sex: Female
  Weight: 131.52 kg

DRUGS (1)
  1. IMPLANON [Suspect]
     Indication: CONTRACEPTION
     Dosage: UNK
     Dates: start: 20121009, end: 20130531

REACTIONS (13)
  - Surgery [Unknown]
  - General anaesthesia [Unknown]
  - Madarosis [Unknown]
  - Device difficult to use [Recovering/Resolving]
  - Weight increased [Unknown]
  - Alopecia [Unknown]
  - Migraine [Unknown]
  - Back pain [Unknown]
  - Abdominal pain lower [Unknown]
  - Menorrhagia [Unknown]
  - Medical device complication [Recovering/Resolving]
  - Mood swings [Unknown]
  - Depression [Unknown]
